FAERS Safety Report 4379092-4 (Version None)
Quarter: 2004Q2

REPORT INFORMATION
  Report Type: 
  Country: None (occurrence: None)
  Receive Date: 20040610
  Receipt Date: 20040528
  Transmission Date: 20050107
  Serious: No
  Sender: FDA-Public Use
  Company Number: 2004CG00497

PATIENT
  Age: 55 Year
  Sex: Female

DRUGS (4)
  1. MOPRAL [Suspect]
     Dates: start: 20030101, end: 20030101
  2. MOPRAL [Suspect]
     Dosage: 20 MG DAILY PO
     Route: 048
     Dates: start: 20040221
  3. MONI-TILDIEM [Concomitant]
  4. LIPANTHYL ^FOURNIER^ [Concomitant]

REACTIONS (1)
  - CYTOLYTIC HEPATITIS [None]
